FAERS Safety Report 22993713 (Version 2)
Quarter: 2023Q4

REPORT INFORMATION
  Report Type: Spontaneous
  Country: JP (occurrence: JP)
  Receive Date: 20230927
  Receipt Date: 20231017
  Transmission Date: 20240109
  Serious: Yes (Death, Other)
  Sender: FDA-Public Use
  Company Number: JP-BRISTOL-MYERS SQUIBB COMPANY-2023-131157

PATIENT
  Age: 75 Year
  Sex: Male

DRUGS (3)
  1. EMPLICITI [Suspect]
     Active Substance: ELOTUZUMAB
     Indication: Plasma cell myeloma
     Dosage: 3 ADMINISTRATIONS, 1 OFF
     Route: 041
     Dates: start: 2021, end: 2023
  2. POMALYST [Suspect]
     Active Substance: POMALIDOMIDE
     Indication: Plasma cell myeloma
     Dosage: EPD: 3 ADMINISTRATIONS, 1 OFF, POM 4 MG ONCE DAILY, EVERY OTHER DAY ADMINISTRATION.
     Route: 048
     Dates: start: 2021, end: 202308
  3. LENADEX [Suspect]
     Active Substance: DEXAMETHASONE ACETATE
     Indication: Plasma cell myeloma
     Dosage: 3 ADMINISTRATIONS, 1 OFF
     Route: 048

REACTIONS (4)
  - Plasma cell myeloma [Not Recovered/Not Resolved]
  - Post procedural infection [Fatal]
  - Intentional product use issue [Not Recovered/Not Resolved]
  - Blood immunoglobulin G increased [Not Recovered/Not Resolved]

NARRATIVE: CASE EVENT DATE: 20210101
